FAERS Safety Report 8505917 (Version 3)
Quarter: 2015Q4

REPORT INFORMATION
  Report Type: Spontaneous
  Country: US (occurrence: US)
  Receive Date: 20120412
  Receipt Date: 20151105
  Transmission Date: 20160305
  Serious: Yes (Hospitalization, Other)
  Sender: FDA-Public Use
  Company Number: US-ASTRAZENECA-2010SE16988

PATIENT
  Age: 27272 Day
  Sex: Female
  Weight: 49.9 kg

DRUGS (4)
  1. PULMICORT RESPULES [Suspect]
     Active Substance: BUDESONIDE
     Route: 055
  2. SYMBICORT [Suspect]
     Active Substance: BUDESONIDE\FORMOTEROL FUMARATE DIHYDRATE
     Dosage: DOSAGE AND FREQUENCY UNKNOWN.
     Route: 055
  3. NEXIUM [Suspect]
     Active Substance: ESOMEPRAZOLE MAGNESIUM
     Indication: GASTROOESOPHAGEAL REFLUX DISEASE
     Route: 048
  4. VITAMINS NOS [Concomitant]
     Active Substance: VITAMINS

REACTIONS (17)
  - Blindness unilateral [Unknown]
  - Struck by lightning [Unknown]
  - Retinal vascular disorder [Unknown]
  - Chronic obstructive pulmonary disease [Unknown]
  - Oral fungal infection [Not Recovered/Not Resolved]
  - Product name confusion [Unknown]
  - Drug dose omission [Unknown]
  - Adverse reaction [Unknown]
  - Nasopharyngitis [Unknown]
  - Oropharyngeal pain [Unknown]
  - Memory impairment [Unknown]
  - Rotator cuff syndrome [Unknown]
  - Foot fracture [Unknown]
  - Balance disorder [Unknown]
  - Fall [Unknown]
  - Sinus disorder [Unknown]
  - Malaise [Unknown]

NARRATIVE: CASE EVENT DATE: 201509
